FAERS Safety Report 8405729-6 (Version None)
Quarter: 2012Q2

REPORT INFORMATION
  Report Type: 
  Country: None (occurrence: None)
  Receive Date: 20120530
  Receipt Date: 20120530
  Transmission Date: 20120825
  Serious: No
  Sender: FDA-Public Use
  Company Number: None

PATIENT
  Age: 33 Year
  Sex: Male
  Weight: 75.1 kg

DRUGS (1)
  1. ASENAPINE [Suspect]
     Dosage: 5 MG BID PO
     Route: 048
     Dates: start: 20111118, end: 20111128

REACTIONS (2)
  - ABNORMAL BEHAVIOUR [None]
  - DECREASED APPETITE [None]
